FAERS Safety Report 7753343-8 (Version None)
Quarter: 2011Q3

REPORT INFORMATION
  Report Type: 
  Country: None (occurrence: None)
  Receive Date: 20110915
  Receipt Date: 20110906
  Transmission Date: 20111222
  Serious: Yes (Hospitalization)
  Sender: FDA-Public Use
  Company Number: JP-NOVOPROD-319027

PATIENT

DRUGS (8)
  1. VICTOZA [Suspect]
     Indication: TYPE 2 DIABETES MELLITUS
     Dosage: 0.3 MG, QD
     Route: 058
     Dates: start: 20100917
  2. MELBIN                             /00082702/ [Concomitant]
     Dosage: UNK
     Dates: start: 20070803
  3. NORVASC [Concomitant]
     Indication: HYPERTENSION
     Dosage: 5 MG, QD
     Route: 048
     Dates: start: 20070803
  4. AMARYL [Concomitant]
     Dosage: 1 MG, QD
     Route: 065
     Dates: start: 20091204
  5. CRESTOR [Concomitant]
     Indication: DYSLIPIDAEMIA
     Dosage: 2.5 MG, QD
     Route: 048
     Dates: start: 20070803
  6. VICTOZA [Suspect]
     Dosage: 0.9 MG QD
     Route: 058
     Dates: end: 20101117
  7. DIOVAN [Concomitant]
     Indication: HYPERTENSION
     Dosage: 20 MG, QD
     Route: 048
     Dates: start: 20070803
  8. ZOLPIDEM [Concomitant]
     Dosage: 5 MG, QD
     Route: 065
     Dates: start: 20100409

REACTIONS (1)
  - THYROID NEOPLASM [None]
